FAERS Safety Report 14125647 (Version 1)
Quarter: 2017Q4

REPORT INFORMATION
  Report Type: Spontaneous
  Country: US (occurrence: US)
  Receive Date: 20171025
  Receipt Date: 20171025
  Transmission Date: 20180321
  Serious: No
  Sender: FDA-Public Use
  Company Number: US-GLAXOSMITHKLINE-US2017161335

PATIENT
  Age: 59 Year
  Sex: Female

DRUGS (17)
  1. LORAZEPAM. [Concomitant]
     Active Substance: LORAZEPAM
  2. AMITIZA [Concomitant]
     Active Substance: LUBIPROSTONE
  3. RELISTOR [Concomitant]
     Active Substance: METHYLNALTREXONE BROMIDE
  4. SEROQUEL [Concomitant]
     Active Substance: QUETIAPINE FUMARATE
  5. TRILEPTAL [Concomitant]
     Active Substance: OXCARBAZEPINE
  6. METHOTREXATE. [Concomitant]
     Active Substance: METHOTREXATE
  7. PHENERGAN [Concomitant]
     Active Substance: PROMETHAZINE HYDROCHLORIDE
  8. BENLYSTA [Suspect]
     Active Substance: BELIMUMAB
     Indication: PRODUCT USED FOR UNKNOWN INDICATION
     Dosage: 120 MG, CYC
     Route: 042
  9. AMBIEN [Concomitant]
     Active Substance: ZOLPIDEM TARTRATE
  10. SYNTHROID [Concomitant]
     Active Substance: LEVOTHYROXINE SODIUM
  11. WELLBUTRIN [Concomitant]
     Active Substance: BUPROPION HYDROCHLORIDE
  12. ONDANSETRON [Concomitant]
     Active Substance: ONDANSETRON
  13. MORPHINE [Concomitant]
     Active Substance: MORPHINE
  14. BACLOFEN. [Concomitant]
     Active Substance: BACLOFEN
  15. PREDNISONE. [Concomitant]
     Active Substance: PREDNISONE
  16. LEXAPRO [Concomitant]
     Active Substance: ESCITALOPRAM OXALATE
  17. RITALIN [Concomitant]
     Active Substance: METHYLPHENIDATE HYDROCHLORIDE

REACTIONS (2)
  - Pruritus [Unknown]
  - Erythema [Unknown]

NARRATIVE: CASE EVENT DATE: 20171019
